FAERS Safety Report 7558199-4 (Version None)
Quarter: 2011Q2

REPORT INFORMATION
  Report Type: 
  Country: None (occurrence: None)
  Receive Date: 20110620
  Receipt Date: 20110614
  Transmission Date: 20111010
  Serious: Yes (Other)
  Sender: FDA-Public Use
  Company Number: AU-PFIZER INC-2011130252

PATIENT
  Age: 42 Year
  Sex: Male

DRUGS (4)
  1. DIAZEPAM [Suspect]
  2. AMPHETAMINES [Suspect]
  3. MORPHINE [Suspect]
     Route: 042
  4. ALPRAZOLAM [Suspect]

REACTIONS (2)
  - SUBSTANCE ABUSE [None]
  - DRUG DEPENDENCE [None]
